FAERS Safety Report 8169932-5 (Version None)
Quarter: 2012Q1

REPORT INFORMATION
  Report Type: 
  Country: None (occurrence: None)
  Receive Date: 20120228
  Receipt Date: 20120228
  Transmission Date: 20120608
  Serious: Yes (Hospitalization)
  Sender: FDA-Public Use
  Company Number: None

PATIENT
  Age: 6 Year
  Sex: Female
  Weight: 346.99 kg

DRUGS (1)
  1. PAROXETINE HCL [Suspect]
     Indication: ANXIETY
     Dosage: 10 MG
     Route: 048
     Dates: start: 20120223, end: 20120225

REACTIONS (6)
  - INSOMNIA [None]
  - ABNORMAL BEHAVIOUR [None]
  - DIZZINESS [None]
  - DYSSTASIA [None]
  - MUSCULAR WEAKNESS [None]
  - PSYCHOMOTOR HYPERACTIVITY [None]
